FAERS Safety Report 21590702 (Version 1)
Quarter: 2022Q4

REPORT INFORMATION
  Report Type: Spontaneous
  Country: US (occurrence: US)
  Receive Date: 20221114
  Receipt Date: 20221114
  Transmission Date: 20230113
  Serious: No
  Sender: FDA-Public Use
  Company Number: US-TARO PHARMACEUTICALS USA INC.-2022TAR00612

PATIENT

DRUGS (10)
  1. MUPIROCIN [Suspect]
     Active Substance: MUPIROCIN
     Indication: Eczema
     Dosage: UNK, BID,TOPICAL TO RIGHT LEG
     Route: 061
     Dates: start: 20220420
  2. MUPIROCIN [Suspect]
     Active Substance: MUPIROCIN
     Indication: Wound
     Dosage: UNK
     Route: 061
     Dates: start: 2022
  3. CEFADROXIL [Concomitant]
     Active Substance: CEFADROXIL
     Indication: Eczema
     Dosage: UNK
     Route: 048
     Dates: start: 20220420
  4. CEFADROXIL [Concomitant]
     Active Substance: CEFADROXIL
     Indication: Wound
  5. TRIAMCINOLONE [Concomitant]
     Active Substance: TRIAMCINOLONE
     Indication: Eczema
     Dosage: UNK
     Route: 065
     Dates: start: 202107
  6. TRIAMCINOLONE [Concomitant]
     Active Substance: TRIAMCINOLONE
     Indication: Wound
  7. MUPIROCIN [Concomitant]
     Active Substance: MUPIROCIN
     Indication: Eczema
     Dosage: UNK
     Route: 065
     Dates: start: 2021
  8. MUPIROCIN [Concomitant]
     Active Substance: MUPIROCIN
     Indication: Wound
     Dosage: UNK
     Route: 065
     Dates: start: 2022
  9. BETAMETHASONE [Concomitant]
     Active Substance: BETAMETHASONE
     Indication: Eczema
     Dosage: UNK
     Route: 065
     Dates: start: 202203
  10. BETAMETHASONE [Concomitant]
     Active Substance: BETAMETHASONE
     Indication: Wound

REACTIONS (5)
  - Skin disorder [Not Recovered/Not Resolved]
  - Condition aggravated [Not Recovered/Not Resolved]
  - Drug ineffective for unapproved indication [Unknown]
  - Skin burning sensation [Not Recovered/Not Resolved]
  - Pruritus [Not Recovered/Not Resolved]
